FAERS Safety Report 5284743-6 (Version None)
Quarter: 2007Q2

REPORT INFORMATION
  Report Type: 
  Country: None (occurrence: None)
  Receive Date: 20070403
  Receipt Date: 20070329
  Transmission Date: 20071010
  Serious: Yes (Death)
  Sender: FDA-Public Use
  Company Number: IE-AVENTIS-200612185EU

PATIENT
  Age: 92 Year
  Sex: Male

DRUGS (2)
  1. CLEXANE [Suspect]
     Indication: ACUTE CORONARY SYNDROME
     Route: 058
     Dates: start: 20060101, end: 20060101
  2. CLEXANE [Suspect]
     Route: 058
     Dates: start: 20060101, end: 20060101

REACTIONS (4)
  - ABDOMINAL DISTENSION [None]
  - CONTUSION [None]
  - HYPERSENSITIVITY [None]
  - MYOCARDIAL INFARCTION [None]
